FAERS Safety Report 4792482-0 (Version None)
Quarter: 2005Q4

REPORT INFORMATION
  Report Type: 
  Country: None (occurrence: None)
  Receive Date: 20051010
  Receipt Date: 20050927
  Transmission Date: 20060501
  Serious: Yes (Hospitalization, Other)
  Sender: FDA-Public Use
  Company Number: 2005AC01527

PATIENT
  Age: 3 Day
  Sex: Male
  Weight: 4 kg

DRUGS (3)
  1. DIPRIVAN [Suspect]
     Indication: SEDATION
     Dosage: 30 KG/H DURING 12 HOURS
     Route: 042
     Dates: start: 20050916, end: 20050917
  2. ZANTAC [Concomitant]
  3. DAFALGAN [Concomitant]

REACTIONS (4)
  - ANURIA [None]
  - METABOLIC ACIDOSIS [None]
  - PERITONEAL DIALYSIS [None]
  - RHABDOMYOLYSIS [None]
